FAERS Safety Report 20963980 (Version 1)
Quarter: 2022Q2

REPORT INFORMATION
  Report Type: Spontaneous
  Country: US (occurrence: US)
  Receive Date: 20220615
  Receipt Date: 20220615
  Transmission Date: 20220721
  Serious: Yes (Hospitalization)
  Sender: FDA-Public Use
  Company Number: US-BAYER-2022A079661

PATIENT
  Age: 82 Year
  Sex: Male
  Weight: 76.4 kg

DRUGS (3)
  1. AFRIN NO DRIP ORIGINAL PUMP MIST [Suspect]
     Active Substance: OXYMETAZOLINE HYDROCHLORIDE
     Dosage: UNK
  2. TYVASO [Concomitant]
     Active Substance: TREPROSTINIL
     Dosage: 60 MG
     Route: 055
  3. SILDENAFIL CITRATE [Concomitant]
     Active Substance: SILDENAFIL CITRATE
     Dosage: UNK

REACTIONS (3)
  - Prostatomegaly [None]
  - Urinary retention [None]
  - Ageusia [Unknown]
